FAERS Safety Report 21551564 (Version 1)
Quarter: 2022Q4

REPORT INFORMATION
  Report Type: Spontaneous
  Country: FR (occurrence: FR)
  Receive Date: 20221104
  Receipt Date: 20221104
  Transmission Date: 20230112
  Serious: Yes (Life-Threatening)
  Sender: FDA-Public Use
  Company Number: FR-AFSSAPS-BX20224368

PATIENT
  Age: 66 Year
  Sex: Male
  Weight: 72.8 kg

DRUGS (2)
  1. MORPHINE [Suspect]
     Active Substance: MORPHINE
     Indication: Postoperative analgesia
     Dosage: 38 MILLIGRAM, 1 TOTAL
     Route: 040
     Dates: start: 20220727, end: 20220822
  2. FENTANYL [Suspect]
     Active Substance: FENTANYL
     Indication: Postoperative analgesia
     Dosage: 250 MCG, 3/DAY
     Route: 062
     Dates: start: 20220727, end: 20220822

REACTIONS (2)
  - Accidental overdose [Recovered/Resolved]
  - Acute respiratory distress syndrome [Recovered/Resolved]

NARRATIVE: CASE EVENT DATE: 20220822
